FAERS Safety Report 18862638 (Version 1)
Quarter: 2021Q1

REPORT INFORMATION
  Report Type: Spontaneous
  Country: ES (occurrence: ES)
  Receive Date: 20210208
  Receipt Date: 20210208
  Transmission Date: 20210420
  Serious: Yes (Death)
  Sender: FDA-Public Use
  Company Number: ES-PFIZER INC-2021103942

PATIENT
  Age: 69 Year
  Sex: Female

DRUGS (14)
  1. TOUJEO [Concomitant]
     Active Substance: INSULIN GLARGINE
     Dosage: 26 MIU, 1X/DAY
     Route: 058
     Dates: start: 20181015, end: 20210103
  2. PREDNISONA KERN PHARMA [Suspect]
     Active Substance: PREDNISONE
     Indication: PSORIATIC ARTHROPATHY
     Dosage: 15 MG, 1X/DAY
     Route: 048
     Dates: start: 20170116, end: 20201220
  3. HIDROFEROL [Concomitant]
     Active Substance: CALCIFEDIOL
     Dosage: 266 UG, MONTHLY
     Route: 048
     Dates: start: 20171121
  4. DULOXETINA PENSA [Concomitant]
     Dosage: 60 MG, 1X/DAY
     Route: 048
     Dates: start: 20190723, end: 20210103
  5. LYRICA [Concomitant]
     Active Substance: PREGABALIN
     Dosage: 150 MG, FREQ:12 H;
     Route: 048
     Dates: start: 20200521
  6. SINTROM [Concomitant]
     Active Substance: ACENOCOUMAROL
     Dosage: UNK
     Route: 048
     Dates: start: 20150225
  7. SYMBICORT [Concomitant]
     Active Substance: BUDESONIDE\FORMOTEROL FUMARATE DIHYDRATE
     Dosage: 1 DF, FREQ:12 H;
     Route: 055
     Dates: start: 20190409
  8. XELJANZ [Suspect]
     Active Substance: TOFACITINIB CITRATE
     Indication: PSORIATIC ARTHROPATHY
     Dosage: 5 MG, 2X/DAY (FREQ:12 H)
     Route: 048
     Dates: start: 20180515, end: 20201220
  9. SINGULAIR [Concomitant]
     Active Substance: MONTELUKAST SODIUM
     Dosage: 10 MG, 1X/DAY
     Route: 048
     Dates: start: 20121002, end: 20210103
  10. FUROSEMIDA KERN PHARMA [Concomitant]
     Dosage: 40 MG, FREQ:12 H;
     Route: 048
     Dates: start: 20190515, end: 20210103
  11. TERBASMIN [TERBUTALINE SULFATE] [Concomitant]
     Dosage: 500 MG, FREQ:6 H;
     Route: 055
     Dates: start: 20181217
  12. OMEPRAZOL PENSA [OMEPRAZOLE] [Concomitant]
     Dosage: 20 MG, 1X/DAY
     Route: 048
     Dates: start: 20121005
  13. METFORMINA [METFORMIN HYDROCHLORIDE] [Concomitant]
     Active Substance: METFORMIN HYDROCHLORIDE
     Dosage: 850  MG, FREQ:12 H;
     Route: 048
     Dates: start: 20160610, end: 20210103
  14. TARGIN [Concomitant]
     Active Substance: NALOXONE HYDROCHLORIDE\OXYCODONE HYDROCHLORIDE
     Dosage: 2 DF, 2X/DAY (FREQ:12 H)
     Route: 048
     Dates: start: 20200521

REACTIONS (1)
  - Herpes zoster meningoencephalitis [Fatal]

NARRATIVE: CASE EVENT DATE: 20201212
